FAERS Safety Report 19991716 (Version 1)
Quarter: 2021Q4

REPORT INFORMATION
  Report Type: Spontaneous
  Country: US (occurrence: US)
  Receive Date: 20211025
  Receipt Date: 20211025
  Transmission Date: 20220303
  Serious: Yes (Hospitalization)
  Sender: FDA-Public Use
  Company Number: US-DRREDDYS-LIT/USA/21/0142916

PATIENT
  Age: 56 Year
  Sex: Male

DRUGS (4)
  1. AMIODARONE HYDROCHLORIDE [Suspect]
     Active Substance: AMIODARONE HYDROCHLORIDE
     Indication: Arrhythmia
  2. ADENOSINE [Suspect]
     Active Substance: ADENOSINE
     Indication: Arrhythmia
  3. LIDOCAINE [Suspect]
     Active Substance: LIDOCAINE
     Indication: Arrhythmia
  4. PROCAINAMIDE HYDROCHLORIDE [Suspect]
     Active Substance: PROCAINAMIDE HYDROCHLORIDE
     Indication: Arrhythmia

REACTIONS (1)
  - Ventricular tachycardia [Recovered/Resolved]
